FAERS Safety Report 23330883 (Version 2)
Quarter: 2024Q1

REPORT INFORMATION
  Report Type: Report from Study
  Country: US (occurrence: US)
  Receive Date: 20231222
  Receipt Date: 20240110
  Transmission Date: 20240409
  Serious: Yes (Other)
  Sender: FDA-Public Use
  Company Number: US-BAYER-2023A150430

PATIENT
  Age: 66 Year
  Sex: Male

DRUGS (7)
  1. NUBEQA [Suspect]
     Active Substance: DAROLUTAMIDE
     Indication: Hormone-refractory prostate cancer
     Dosage: 600 MG, BID
     Route: 048
     Dates: start: 20230626
  2. CHLORHEXIDINE GLUCONATE [Concomitant]
     Active Substance: CHLORHEXIDINE GLUCONATE
  3. LUPRON [Concomitant]
     Active Substance: LEUPROLIDE ACETATE
  4. MIRALAX [Concomitant]
     Active Substance: POLYETHYLENE GLYCOL 3350
  5. VITAMINS NOS [Concomitant]
     Active Substance: VITAMINS
  6. SENNA LEAF [Concomitant]
     Active Substance: SENNA LEAF
  7. BENADRYL [Concomitant]
     Active Substance: DIPHENHYDRAMINE HYDROCHLORIDE
     Dosage: 25MG

REACTIONS (5)
  - Pain in extremity [Recovering/Resolving]
  - Fine motor skill dysfunction [Recovering/Resolving]
  - Hypertension [Not Recovered/Not Resolved]
  - Accident [Unknown]
  - Pain in extremity [Not Recovered/Not Resolved]
